FAERS Safety Report 7350043-3 (Version None)
Quarter: 2011Q1

REPORT INFORMATION
  Report Type: 
  Country: None (occurrence: None)
  Receive Date: 20110314
  Receipt Date: 20110311
  Transmission Date: 20110831
  Serious: Yes (Hospitalization)
  Sender: FDA-Public Use
  Company Number: AR-ROCHE-764848

PATIENT
  Sex: Female

DRUGS (1)
  1. CAPECITABINE [Suspect]
     Indication: COLON CANCER
     Dosage: FREQUENCY: DAILY
     Route: 048
     Dates: start: 20110105, end: 20110218

REACTIONS (3)
  - HAEMATURIA [None]
  - ABDOMINAL PAIN UPPER [None]
  - GASTROINTESTINAL PAIN [None]
